FAERS Safety Report 21438490 (Version 1)
Quarter: 2022Q4

REPORT INFORMATION
  Report Type: Spontaneous
  Country: US (occurrence: US)
  Receive Date: 20221011
  Receipt Date: 20221011
  Transmission Date: 20230113
  Serious: No
  Sender: FDA-Public Use
  Company Number: US-ORGANON-O2209USA002069

PATIENT
  Sex: Female
  Weight: 109.3 kg

DRUGS (25)
  1. ZOCOR [Suspect]
     Active Substance: SIMVASTATIN
     Dosage: 1 TABLET BY MOUTH IN THE EVENING AT BEDTIME;90 TABLETS
     Route: 048
     Dates: start: 20220609
  2. COZAAR [Suspect]
     Active Substance: LOSARTAN POTASSIUM
     Dosage: 1 TABLET, QD
     Route: 048
     Dates: start: 20220721
  3. JANUVIA [Concomitant]
     Active Substance: SITAGLIPTIN PHOSPHATE
     Indication: Diabetes mellitus
     Dosage: 100 MILLIGRAM, QD, IN MORNING
     Route: 048
  4. JANUVIA [Concomitant]
     Active Substance: SITAGLIPTIN PHOSPHATE
     Dosage: UNK
     Route: 048
     Dates: end: 202205
  5. GLUCOPHAGE [Concomitant]
     Active Substance: METFORMIN HYDROCHLORIDE
     Dosage: TAKE 2 TABLET BY MOUTH DAILY; 360 TABLETS
     Route: 048
     Dates: start: 20220117
  6. GLUCOTROL XL [Concomitant]
     Active Substance: GLIPIZIDE
     Dosage: TAKE 1 TABLET (10 MG TOTAL);24 HRS; 90 TABLET
     Route: 048
     Dates: start: 20220428
  7. ALPHA LIPOIC ACID [Concomitant]
     Active Substance: .ALPHA.-LIPOIC ACID
     Dosage: UNK
     Route: 048
  8. NORVASC [Concomitant]
     Active Substance: AMLODIPINE BESYLATE
     Dosage: 1 TABLET (10 MG TOTAL) BY MOUTH DAILY
     Dates: start: 20220228
  9. VITAMIN C [Concomitant]
     Active Substance: ASCORBIC ACID
     Dosage: 500 MILLIGRAM, QD
     Route: 048
  10. VITAMIN D3 [Concomitant]
     Active Substance: CHOLECALCIFEROL
     Dosage: 1000 UNIT TABLET; TAKE 5000 UNITS
     Route: 048
  11. PLAVIX [Concomitant]
     Active Substance: CLOPIDOGREL BISULFATE
     Dosage: TAKE 1 TABLET (75 MILLIGRAM), QD;90 TABLETS
     Route: 048
     Dates: start: 20211208
  12. COD LIVER OIL [Concomitant]
     Active Substance: COD LIVER OIL
     Dosage: 1000 MILLIGRAM, QD
     Route: 048
  13. COENZYME Q10 [Concomitant]
     Active Substance: DIETARY SUPPLEMENT\UBIDECARENONE
     Dosage: 100 MILLIGRAM, QD
     Route: 048
  14. GUAIFENESIN [Concomitant]
     Active Substance: GUAIFENESIN
     Dosage: 400 MILLIGRAM, QD
     Route: 048
  15. HORSE CHESTNUT SEED EXTRACT [Concomitant]
     Dosage: UNK
     Route: 048
  16. HYDRODIURIL [Concomitant]
     Active Substance: HYDROCHLOROTHIAZIDE
     Dosage: TAKE 1 TABLET BY MOUTH DAILY; 90 TABLETS
     Route: 048
     Dates: start: 20220721
  17. ATARAX [Concomitant]
     Active Substance: HYDROXYZINE HYDROCHLORIDE
     Indication: Pruritus
     Dosage: TAKE 1 TABLET (25 MG TOTAL);30 TABLETS
     Route: 048
     Dates: start: 20210618
  18. ADVIL [Concomitant]
     Active Substance: IBUPROFEN
     Dosage: 1 TABLET, Q8H;180 TABLETS
     Route: 048
     Dates: start: 20220823
  19. MOTRIN [Concomitant]
     Active Substance: IBUPROFEN
     Dosage: 1 TABLET, Q8H; 180 TABLETS
     Route: 048
     Dates: start: 20220823
  20. PROTONIX [Concomitant]
     Active Substance: PANTOPRAZOLE SODIUM
     Dosage: 1 TABLET, QD;90 TABLETS
     Route: 048
     Dates: start: 20220201
  21. RYBELSUS [Concomitant]
     Active Substance: SEMAGLUTIDE
     Dosage: 3 MILLIGRAM, QD; 30 TABLETS
     Route: 048
     Dates: start: 20220803
  22. RYBELSUS [Concomitant]
     Active Substance: SEMAGLUTIDE
     Dosage: 6 MILLIGRAM, QD;30 TABLETS
     Route: 048
     Dates: start: 20220902
  23. RYBELSUS [Concomitant]
     Active Substance: SEMAGLUTIDE
     Dosage: 7 MILLIGRAM, QD;EVERY MORNING
     Route: 048
     Dates: start: 20220902
  24. ULTRAM ER [Concomitant]
     Active Substance: TRAMADOL HYDROCHLORIDE
     Indication: Pain
     Dosage: 1 TABLET, QD;30 TABLET
     Route: 048
     Dates: start: 20220822, end: 20220921
  25. TURMERIC [Concomitant]
     Active Substance: TURMERIC
     Dosage: UNK
     Route: 048

REACTIONS (2)
  - Blood glucose increased [Not Recovered/Not Resolved]
  - Dizziness [Not Recovered/Not Resolved]
